FAERS Safety Report 9460642 (Version 3)
Quarter: 2014Q1

REPORT INFORMATION
  Report Type: Spontaneous
  Country: BR (occurrence: BR)
  Receive Date: 20130815
  Receipt Date: 20140210
  Transmission Date: 20141002
  Serious: Yes (Other)
  Sender: FDA-Public Use
  Company Number: PHHY2013BR085458

PATIENT
  Sex: Male
  Weight: 78 kg

DRUGS (3)
  1. DIOVAN [Suspect]
     Indication: HYPERTENSION
     Dosage: 1 DF (160 MG) IN THE MORNING
     Route: 048
  2. DIOVAN [Suspect]
     Dosage: 1 DF (160 MG) IN THE MORNING
     Route: 048
  3. VYTORIN [Suspect]
     Indication: BLOOD CHOLESTEROL ABNORMAL
     Dosage: UNK UKN, UNK

REACTIONS (8)
  - Carpal tunnel syndrome [Not Recovered/Not Resolved]
  - Blood pressure increased [Recovered/Resolved]
  - Influenza [Not Recovered/Not Resolved]
  - Oropharyngeal pain [Not Recovered/Not Resolved]
  - Back pain [Not Recovered/Not Resolved]
  - Chest pain [Not Recovered/Not Resolved]
  - Blood pressure inadequately controlled [Not Recovered/Not Resolved]
  - Drug ineffective [Not Recovered/Not Resolved]
